FAERS Safety Report 6370794-7 (Version None)
Quarter: 2009Q3

REPORT INFORMATION
  Report Type: 
  Country: None (occurrence: None)
  Receive Date: 20090923
  Receipt Date: 20070416
  Transmission Date: 20100115
  Serious: No
  Sender: FDA-Public Use
  Company Number: US-ASTRAZENECA-2006UW24805

PATIENT
  Age: 19675 Day
  Sex: Female
  Weight: 94.3 kg

DRUGS (81)
  1. SEROQUEL [Suspect]
     Indication: MOOD SWINGS
     Dosage: 25 MG TO 600 MG
     Route: 048
     Dates: start: 20010924, end: 20020626
  2. SEROQUEL [Suspect]
     Indication: MAJOR DEPRESSION
     Dosage: 25 MG TO 600 MG
     Route: 048
     Dates: start: 20010924, end: 20020626
  3. SEROQUEL [Suspect]
     Indication: DEPRESSION
     Dosage: 25 MG TO 600 MG
     Route: 048
     Dates: start: 20010924, end: 20020626
  4. SEROQUEL [Suspect]
     Indication: ANXIETY
     Dosage: 25 MG TO 600 MG
     Route: 048
     Dates: start: 20010924, end: 20020626
  5. SEROQUEL [Suspect]
     Indication: PANIC ATTACK
     Dosage: 25 MG TO 600 MG
     Route: 048
     Dates: start: 20010924, end: 20020626
  6. SEROQUEL [Suspect]
     Indication: INSOMNIA
     Dosage: 25 MG TO 600 MG
     Route: 048
     Dates: start: 20010924, end: 20020626
  7. SEROQUEL [Suspect]
     Dosage: 50 MG TO 600 MG
     Route: 048
     Dates: start: 20011001, end: 20060201
  8. SEROQUEL [Suspect]
     Dosage: 50 MG TO 600 MG
     Route: 048
     Dates: start: 20011001, end: 20060201
  9. SEROQUEL [Suspect]
     Dosage: 50 MG TO 600 MG
     Route: 048
     Dates: start: 20011001, end: 20060201
  10. SEROQUEL [Suspect]
     Dosage: 50 MG TO 600 MG
     Route: 048
     Dates: start: 20011001, end: 20060201
  11. SEROQUEL [Suspect]
     Dosage: 50 MG TO 600 MG
     Route: 048
     Dates: start: 20011001, end: 20060201
  12. SEROQUEL [Suspect]
     Dosage: 50 MG TO 600 MG
     Route: 048
     Dates: start: 20011001, end: 20060201
  13. SEROQUEL [Suspect]
     Dosage: 25 MG TO 1200 MG
     Route: 048
     Dates: start: 20020101, end: 20050830
  14. SEROQUEL [Suspect]
     Dosage: 25 MG TO 1200 MG
     Route: 048
     Dates: start: 20020101, end: 20050830
  15. SEROQUEL [Suspect]
     Dosage: 25 MG TO 1200 MG
     Route: 048
     Dates: start: 20020101, end: 20050830
  16. SEROQUEL [Suspect]
     Dosage: 25 MG TO 1200 MG
     Route: 048
     Dates: start: 20020101, end: 20050830
  17. SEROQUEL [Suspect]
     Dosage: 25 MG TO 1200 MG
     Route: 048
     Dates: start: 20020101, end: 20050830
  18. SEROQUEL [Suspect]
     Dosage: 25 MG TO 1200 MG
     Route: 048
     Dates: start: 20020101, end: 20050830
  19. SEROQUEL [Suspect]
     Dosage: 20 MG TO 600 MG
     Route: 048
     Dates: start: 20050101, end: 20060725
  20. SEROQUEL [Suspect]
     Dosage: 20 MG TO 600 MG
     Route: 048
     Dates: start: 20050101, end: 20060725
  21. SEROQUEL [Suspect]
     Dosage: 20 MG TO 600 MG
     Route: 048
     Dates: start: 20050101, end: 20060725
  22. SEROQUEL [Suspect]
     Dosage: 20 MG TO 600 MG
     Route: 048
     Dates: start: 20050101, end: 20060725
  23. SEROQUEL [Suspect]
     Dosage: 20 MG TO 600 MG
     Route: 048
     Dates: start: 20050101, end: 20060725
  24. SEROQUEL [Suspect]
     Dosage: 20 MG TO 600 MG
     Route: 048
     Dates: start: 20050101, end: 20060725
  25. SEROQUEL [Suspect]
     Dosage: 25 MG TO 800 MG
     Route: 048
     Dates: start: 20020918, end: 20050830
  26. SEROQUEL [Suspect]
     Dosage: 25 MG TO 800 MG
     Route: 048
     Dates: start: 20020918, end: 20050830
  27. SEROQUEL [Suspect]
     Dosage: 25 MG TO 800 MG
     Route: 048
     Dates: start: 20020918, end: 20050830
  28. SEROQUEL [Suspect]
     Dosage: 25 MG TO 800 MG
     Route: 048
     Dates: start: 20020918, end: 20050830
  29. SEROQUEL [Suspect]
     Dosage: 25 MG TO 800 MG
     Route: 048
     Dates: start: 20020918, end: 20050830
  30. SEROQUEL [Suspect]
     Dosage: 25 MG TO 800 MG
     Route: 048
     Dates: start: 20020918, end: 20050830
  31. SEROQUEL [Suspect]
     Dosage: 20 MG TO 600 MG
     Route: 048
     Dates: start: 20050912, end: 20060725
  32. SEROQUEL [Suspect]
     Dosage: 20 MG TO 600 MG
     Route: 048
     Dates: start: 20050912, end: 20060725
  33. SEROQUEL [Suspect]
     Dosage: 20 MG TO 600 MG
     Route: 048
     Dates: start: 20050912, end: 20060725
  34. SEROQUEL [Suspect]
     Dosage: 20 MG TO 600 MG
     Route: 048
     Dates: start: 20050912, end: 20060725
  35. SEROQUEL [Suspect]
     Dosage: 20 MG TO 600 MG
     Route: 048
     Dates: start: 20050912, end: 20060725
  36. SEROQUEL [Suspect]
     Dosage: 20 MG TO 600 MG
     Route: 048
     Dates: start: 20050912, end: 20060725
  37. AMOXAPINE [Concomitant]
  38. TRAZODONE [Concomitant]
     Dosage: 100-300 MG AT NIGHT
  39. CARDIZEM LA [Concomitant]
     Dosage: 90-240 MG
  40. SPIRIVA [Concomitant]
     Dosage: 1 PUFF PER DAY
  41. LIPITOR [Concomitant]
  42. ASPIRIN [Concomitant]
     Dosage: 81-325 MG
  43. PLAVIX [Concomitant]
  44. ABILIFY [Concomitant]
     Dosage: 5-15 MG
  45. KLONOPIN [Concomitant]
     Dosage: 1-4 MG
  46. GLUCOPHAGE [Concomitant]
     Dosage: PER DAY
  47. CHLORAL HYDRATE [Concomitant]
     Dosage: 10 CC AT NIGHT, 500/5 ML
  48. ACIPHEX [Concomitant]
  49. REQUIP [Concomitant]
  50. AMBIEN [Concomitant]
  51. FOLIC ACID [Concomitant]
     Dosage: PER DAY
  52. ZOCOR [Concomitant]
  53. ALTACE [Concomitant]
     Dosage: 2.5-10 MG PER DAY
  54. COMBIVENT [Concomitant]
  55. TEMAZEPAM [Concomitant]
  56. XANAX [Concomitant]
     Indication: PANIC ATTACK
     Dosage: 1 MG FOUR TIMES A DAY, AS NEEDED
  57. GOODY'S POWDER [Concomitant]
     Dosage: AS NEEDED
  58. SERZONE [Concomitant]
     Dosage: 200 MG TWO AT NIGHT
     Route: 048
  59. BUMEX [Concomitant]
  60. DURATUSS [Concomitant]
     Dosage: TWO TIMES A DAY
     Route: 048
  61. VIT B12 [Concomitant]
     Dosage: PER DAY
  62. VIT B6 [Concomitant]
     Dosage: PER DAY
  63. METHYPRED [Concomitant]
  64. OMEGA 3 FATTY ACIDS [Concomitant]
  65. PROGESTERONE [Concomitant]
  66. TOPROL-XL [Concomitant]
     Dosage: 25-50 MG PER DAY
  67. RESPA DM [Concomitant]
  68. TRI-EST [Concomitant]
  69. EFFEXOR [Concomitant]
     Indication: DEPRESSION
     Dosage: 75-225 MG
  70. EFFEXOR [Concomitant]
     Indication: PANIC ATTACK
     Dosage: 75-225 MG
  71. VALIUM [Concomitant]
     Dosage: 10 MG FOUR TIMES A DAY AS NEEDED
     Dates: end: 20020219
  72. PREVACID [Concomitant]
  73. METADATE CD [Concomitant]
  74. HUMIBID LA [Concomitant]
     Dosage: TWO TIMES A DAY
  75. ZOLOFT [Concomitant]
  76. NEXIUM [Concomitant]
  77. ADVAIR HFA [Concomitant]
     Dosage: 250/50, ONE PUFF TWO TIMES A DAY
  78. LEXAPRO [Concomitant]
  79. ATIVAN [Concomitant]
     Dates: end: 20050912
  80. PROZAC [Concomitant]
     Dosage: 20-60 MG
  81. PRILOSEC [Concomitant]

REACTIONS (3)
  - DIABETES MELLITUS [None]
  - METABOLIC SYNDROME [None]
  - TYPE 2 DIABETES MELLITUS [None]
